FAERS Safety Report 9197708 (Version 1)
Quarter: 2013Q1

REPORT INFORMATION
  Report Type: Spontaneous
  Country: US (occurrence: US)
  Receive Date: 20130328
  Receipt Date: 20130328
  Transmission Date: 20140127
  Serious: No
  Sender: FDA-Public Use
  Company Number: US-GALDERMA-US-GDP-11412583

PATIENT
  Age: 63 Year
  Sex: Female
  Weight: 106 kg

DRUGS (5)
  1. CLOBEX [Suspect]
     Indication: PSORIASIS
     Route: 061
     Dates: start: 2010, end: 20111101
  2. JANUMET (SITAGLIPTIN) [Concomitant]
     Indication: DIABETES MELLITUS
     Route: 048
     Dates: start: 2011
  3. LOSARTAN [Concomitant]
     Indication: HYPERTENSION
     Route: 048
     Dates: start: 201109
  4. LEVOTHYROXIN [Concomitant]
     Indication: HYPOTHYROIDISM
     Route: 048
     Dates: start: 2001
  5. PRILOSEC [Concomitant]

REACTIONS (2)
  - Drug ineffective [None]
  - Expired drug administered [None]
